FAERS Safety Report 21328945 (Version 1)
Quarter: 2022Q3

REPORT INFORMATION
  Report Type: Spontaneous
  Country: US (occurrence: None)
  Receive Date: 20220912
  Receipt Date: 20220912
  Transmission Date: 20221026
  Serious: Yes (Other)
  Sender: FDA-Public Use
  Company Number: None

PATIENT
  Age: 60 Year
  Sex: Female
  Weight: 79.1 kg

DRUGS (2)
  1. DOCETAXEL [Suspect]
     Active Substance: DOCETAXEL
     Indication: Endometrial cancer
     Route: 041
  2. DOCETAXEL [Suspect]
     Active Substance: DOCETAXEL
     Indication: Endometrial cancer
     Route: 041

REACTIONS (6)
  - Flushing [None]
  - Dyspnoea [None]
  - Feeling hot [None]
  - Chest discomfort [None]
  - Head discomfort [None]
  - Blood pressure decreased [None]

NARRATIVE: CASE EVENT DATE: 20220831
